FAERS Safety Report 4922623-3 (Version None)
Quarter: 2006Q1

REPORT INFORMATION
  Report Type: 
  Country: None (occurrence: None)
  Receive Date: 20060224
  Receipt Date: 20060213
  Transmission Date: 20060701
  Serious: Yes (Death)
  Sender: FDA-Public Use
  Company Number: US-JNJFOC-20050904327

PATIENT
  Sex: Female
  Weight: 101.15 kg

DRUGS (2)
  1. ORTHO EVRA [Suspect]
     Route: 062
     Dates: start: 20040301, end: 20040808
  2. ORTHO EVRA [Suspect]
     Route: 062
     Dates: start: 20040301, end: 20040808

REACTIONS (2)
  - OFF LABEL USE [None]
  - PULMONARY EMBOLISM [None]
